FAERS Safety Report 12885335 (Version 2)
Quarter: 2019Q4

REPORT INFORMATION
  Report Type: Spontaneous
  Country: US (occurrence: US)
  Receive Date: 20161026
  Receipt Date: 20191212
  Transmission Date: 20200122
  Serious: Yes (Other)
  Sender: FDA-Public Use
  Company Number: US-TEVA-706123ACC

PATIENT
  Sex: Female

DRUGS (1)
  1. PARAGARD T 380A [Suspect]
     Active Substance: COPPER
     Indication: CONTRACEPTION
     Dates: start: 20150527, end: 20161013

REACTIONS (4)
  - Maternal exposure during pregnancy [Unknown]
  - Complication associated with device [Unknown]
  - Pregnancy on contraceptive [Unknown]
  - Abortion spontaneous [Unknown]
